FAERS Safety Report 16444332 (Version 1)
Quarter: 2019Q2

REPORT INFORMATION
  Report Type: Report from Study
  Country: US (occurrence: US)
  Receive Date: 20190618
  Receipt Date: 20190618
  Transmission Date: 20190711
  Serious: No
  Sender: FDA-Public Use
  Company Number: US-ROCHE-2336861

PATIENT
  Sex: Female
  Weight: 99.88 kg

DRUGS (7)
  1. TYSABRI [Concomitant]
     Active Substance: NATALIZUMAB
  2. TOLTERODINE [Concomitant]
     Active Substance: TOLTERODINE
     Route: 065
  3. TECFIDERA [Concomitant]
     Active Substance: DIMETHYL FUMARATE
  4. COPAXONE [Concomitant]
     Active Substance: GLATIRAMER ACETATE
     Dosage: APPROXIMATELY 8 YEARS
     Route: 065
  5. OCREVUS [Suspect]
     Active Substance: OCRELIZUMAB
     Indication: RELAPSING-REMITTING MULTIPLE SCLEROSIS
     Route: 042
     Dates: start: 201801
  6. NALTREXONE [Concomitant]
     Active Substance: NALTREXONE
     Dosage: QHS
     Route: 065
  7. LEVOTHYROXINE. [Concomitant]
     Active Substance: LEVOTHYROXINE
     Dosage: DOSE: 112 MCG
     Route: 065

REACTIONS (4)
  - Weight increased [Not Recovered/Not Resolved]
  - Urinary tract infection [Not Recovered/Not Resolved]
  - Fall [Unknown]
  - Fatigue [Unknown]
